FAERS Safety Report 6275155-7 (Version None)
Quarter: 2009Q3

REPORT INFORMATION
  Report Type: 
  Country: None (occurrence: None)
  Receive Date: 20090721
  Receipt Date: 20090709
  Transmission Date: 20100115
  Serious: Yes (Hospitalization)
  Sender: FDA-Public Use
  Company Number: GR-PFIZER INC-2009202655

PATIENT
  Age: 29 Year

DRUGS (3)
  1. ZYVOX [Suspect]
  2. BEGALIN ORAL [Concomitant]
  3. DYNASTAT [Concomitant]

REACTIONS (3)
  - DIARRHOEA [None]
  - SKIN LESION [None]
  - VAGINAL INFECTION [None]
